FAERS Safety Report 11664952 (Version 1)
Quarter: 2015Q4

REPORT INFORMATION
  Report Type: Spontaneous
  Country: US (occurrence: None)
  Receive Date: 20151026
  Receipt Date: 20151026
  Transmission Date: 20160304
  Serious: Yes (Other)
  Sender: FDA-Public Use
  Company Number: None

PATIENT
  Age: 44 Year
  Sex: Female
  Weight: 61.4 kg

DRUGS (1)
  1. SUBOXONE [Suspect]
     Active Substance: BUPRENORPHINE HYDROCHLORIDE\NALOXONE HYDROCHLORIDE
     Indication: DRUG DEPENDENCE
     Dosage: 8-2MG   2 DAILY  SUBLINGUAL
     Route: 060
     Dates: start: 20150107

REACTIONS (3)
  - Nausea [None]
  - Irritable bowel syndrome [None]
  - Vomiting [None]

NARRATIVE: CASE EVENT DATE: 20151022
